FAERS Safety Report 15646876 (Version 1)
Quarter: 2018Q4

REPORT INFORMATION
  Report Type: Spontaneous
  Country: GB (occurrence: GB)
  Receive Date: 20181122
  Receipt Date: 20181122
  Transmission Date: 20190205
  Serious: Yes (Other)
  Sender: FDA-Public Use
  Company Number: GB-ASTRAZENECA-2018SF50425

PATIENT
  Age: 73 Year
  Sex: Female
  Weight: 79 kg

DRUGS (15)
  1. FULVESTRANT. [Suspect]
     Active Substance: FULVESTRANT
     Dosage: 250MG/5ML
     Route: 051
     Dates: start: 20181030
  2. EMPAGLIFLOZIN [Concomitant]
     Active Substance: EMPAGLIFLOZIN
     Dates: start: 20180508, end: 20181001
  3. CHLORPHENAMINE [Concomitant]
     Active Substance: CHLORPHENIRAMINE MALEATE
     Dosage: TAKE ONE EVERY 4-6 HRS
     Dates: start: 20181030
  4. OMEPRAZOLE. [Concomitant]
     Active Substance: OMEPRAZOLE
     Dosage: MORNING
     Dates: start: 20181001
  5. PRASUGREL. [Concomitant]
     Active Substance: PRASUGREL
     Dosage: MORNING UNTIL APRIL 2019
     Dates: start: 20180719
  6. RANITIDINE. [Concomitant]
     Active Substance: RANITIDINE
     Dosage: UNTIL APRIL 2019
     Dates: start: 20180412, end: 20181001
  7. NEBIVOLOL. [Concomitant]
     Active Substance: NEBIVOLOL
     Dosage: HALF A TABLET. STOP DIGOXIN
     Dates: start: 20181018
  8. APIXABAN [Concomitant]
     Active Substance: APIXABAN
     Dates: start: 20180412
  9. OPTIVE [Concomitant]
     Active Substance: CARBOXYMETHYLCELLULOSE SODIUM\GLYCERIN
     Dosage: AT LEAST 6 TIMES A DAY TO BOTH EYES
     Dates: start: 20181002, end: 20181030
  10. DIGOXIN. [Concomitant]
     Active Substance: DIGOXIN
     Dosage: MORNING
     Dates: start: 20180209, end: 20181004
  11. GLIMEPIRIDE. [Concomitant]
     Active Substance: GLIMEPIRIDE
     Dates: start: 20180204
  12. EPLERENONE. [Concomitant]
     Active Substance: EPLERENONE
     Dosage: MORNING
     Dates: start: 20180412
  13. GLYCERYL TRINITRATE [Concomitant]
     Active Substance: NITROGLYCERIN
     Dosage: UNDER THE TONGUE
     Route: 060
     Dates: start: 20180412
  14. CANDESARTAN. [Concomitant]
     Active Substance: CANDESARTAN
     Dosage: MORNING
     Dates: start: 20171130
  15. ALOGLIPTIN. [Concomitant]
     Active Substance: ALOGLIPTIN
     Dates: start: 20180204

REACTIONS (3)
  - Paraesthesia oral [Recovered/Resolved]
  - Bradycardia [Recovered/Resolved]
  - Flushing [Recovered/Resolved]

NARRATIVE: CASE EVENT DATE: 20181030
